FAERS Safety Report 11810492 (Version 3)
Quarter: 2016Q4

REPORT INFORMATION
  Report Type: Spontaneous
  Country: DK (occurrence: DK)
  Receive Date: 20151208
  Receipt Date: 20161229
  Transmission Date: 20170206
  Serious: Yes (Hospitalization, Other)
  Sender: FDA-Public Use
  Company Number: DK-PFIZER INC-2015431234

PATIENT
  Age: 71 Year
  Sex: Female
  Weight: 65 kg

DRUGS (13)
  1. FURIX [Concomitant]
     Active Substance: FUROSEMIDE
     Dosage: UNK
     Dates: start: 20150329
  2. KALEORID [Concomitant]
     Active Substance: POTASSIUM CHLORIDE
     Dosage: UNK
     Dates: start: 20150317, end: 20151230
  3. MOVICOL [Concomitant]
     Active Substance: POLYETHYLENE GLYCOL 3350\POTASSIUM CHLORIDE\SODIUM BICARBONATE\SODIUM CHLORIDE
     Dosage: UNK
     Dates: start: 20150606
  4. PINEX [Concomitant]
     Active Substance: ACETAMINOPHEN
     Dosage: UNK
     Dates: start: 20080811
  5. CORDARONE [Suspect]
     Active Substance: AMIODARONE HYDROCHLORIDE
     Indication: ATRIAL FIBRILLATION
     Dosage: 200 MG, DAILY
     Route: 048
     Dates: start: 20150916, end: 20150925
  6. GABAPENTIN. [Concomitant]
     Active Substance: GABAPENTIN
     Dosage: UNK
     Dates: start: 20150622, end: 20151118
  7. RAMIPRIL. [Concomitant]
     Active Substance: RAMIPRIL
     Dosage: UNK
     Dates: start: 20151015
  8. SELOZOK [Concomitant]
     Active Substance: METOPROLOL SUCCINATE
     Dosage: UNK
     Dates: start: 20150329
  9. CALCIUM PLUS VITAMIN D3 [Concomitant]
     Dosage: UNK
     Dates: start: 20150721
  10. GASTRO-TIMELETS [Concomitant]
     Indication: GASTROINTESTINAL HYPOMOTILITY
     Dosage: UNK
     Dates: start: 20120102
  11. MAREVAN [Interacting]
     Active Substance: WARFARIN SODIUM
     Dosage: UNK
     Dates: start: 20151005
  12. PANTOPRAZOLE [Concomitant]
     Active Substance: PANTOPRAZOLE SODIUM
     Indication: ADVERSE DRUG REACTION
     Dosage: UNK
     Dates: start: 20150727
  13. MAREVAN [Interacting]
     Active Substance: WARFARIN SODIUM
     Indication: ATRIAL FIBRILLATION
     Dosage: UNK
     Route: 048
     Dates: start: 20150825, end: 20150924

REACTIONS (8)
  - Asthenia [Unknown]
  - Hyperkalaemia [Recovered/Resolved]
  - International normalised ratio increased [Recovered/Resolved]
  - Dyspnoea [Recovered/Resolved]
  - Drug interaction [Unknown]
  - Blood creatinine increased [Unknown]
  - Hepatotoxicity [Recovered/Resolved]
  - Hypotension [Recovered/Resolved]

NARRATIVE: CASE EVENT DATE: 201509
